FAERS Safety Report 9205800 (Version 1)
Quarter: 2013Q2

REPORT INFORMATION
  Report Type: Spontaneous
  Country: US (occurrence: None)
  Receive Date: 20130401
  Receipt Date: 20130401
  Transmission Date: 20140414
  Serious: Yes (Other)
  Sender: FDA-Public Use
  Company Number: TPA2013A02363

PATIENT
  Age: 65 Year
  Sex: Male

DRUGS (5)
  1. PIOGLITAZONE [Suspect]
     Indication: TYPE 2 DIABETES MELLITUS
     Dates: start: 20130321
  2. ACTOS (PIOGLITAZONE HYDROCHLORIDE) [Suspect]
     Dates: end: 20130320
  3. NATEGLINIDE (NATEGLINIDE) [Concomitant]
  4. BISOPROLOL (BISOPROLOL) [Concomitant]
  5. ACARBOSE (ACARBOSE) [Concomitant]

REACTIONS (6)
  - Syncope [None]
  - Dizziness [None]
  - Dizziness [None]
  - Abdominal pain upper [None]
  - Sinus headache [None]
  - Headache [None]
